FAERS Safety Report 8194117 (Version 10)
Quarter: 2016Q4

REPORT INFORMATION
  Report Type: Spontaneous
  Country: US (occurrence: US)
  Receive Date: 20111021
  Receipt Date: 20161107
  Transmission Date: 20170207
  Serious: Yes (Hospitalization, Disabling, Other)
  Sender: FDA-Public Use
  Company Number: US-009507513-1110USA02739

PATIENT
  Sex: Female
  Weight: 59.42 kg

DRUGS (3)
  1. FOSAMAX [Suspect]
     Active Substance: ALENDRONATE SODIUM
     Indication: OSTEOPOROSIS
     Dosage: 70 MG, QW
     Route: 048
     Dates: start: 200701, end: 200910
  2. ACTONEL [Suspect]
     Active Substance: RISEDRONATE SODIUM
     Indication: OSTEOPOROSIS
     Dates: start: 200501, end: 200703
  3. ACTONEL [Suspect]
     Active Substance: RISEDRONATE SODIUM
     Indication: OSTEOPENIA

REACTIONS (65)
  - Anaemia [Unknown]
  - Peritonitis [Unknown]
  - Depression [Unknown]
  - Hypoaesthesia [Unknown]
  - Dehydration [Unknown]
  - Cystitis [Unknown]
  - Tension headache [Unknown]
  - Asthenia [Unknown]
  - Constipation [Not Recovered/Not Resolved]
  - Hypokalaemia [Unknown]
  - Renal failure [Unknown]
  - Colitis ischaemic [Recovered/Resolved]
  - Exostosis [Unknown]
  - Hypotension [Unknown]
  - Hepatic cyst [Unknown]
  - Infection [Unknown]
  - Lactic acidosis [Unknown]
  - Abdominal sepsis [Unknown]
  - Ear pain [Unknown]
  - Pulmonary hypertension [Unknown]
  - Tooth disorder [Unknown]
  - Hypoaesthesia [Recovered/Resolved]
  - Spinal osteoarthritis [Unknown]
  - Pupillary reflex impaired [Unknown]
  - Vomiting [Recovering/Resolving]
  - Abdominal pain [Unknown]
  - Dizziness [Unknown]
  - Femur fracture [Recovered/Resolved]
  - Glucose tolerance impaired [Unknown]
  - Electrolyte imbalance [Unknown]
  - Blood calcium decreased [Unknown]
  - Diabetes mellitus [Unknown]
  - Chronic gastritis [Unknown]
  - Urinary tract infection [Unknown]
  - Blood phosphorus decreased [Unknown]
  - Dyspnoea [Unknown]
  - Glossitis [Unknown]
  - Cystitis [Unknown]
  - Gastric disorder [Unknown]
  - Fracture [Unknown]
  - Gait disturbance [Unknown]
  - Insomnia [Unknown]
  - Joint effusion [Unknown]
  - Blood potassium decreased [Unknown]
  - Body height decreased [Unknown]
  - Muscle tightness [Unknown]
  - Neck pain [Unknown]
  - Hyponatraemia [Unknown]
  - Vitamin D deficiency [Unknown]
  - Hyperlipidaemia [Unknown]
  - Cough [Unknown]
  - Sleep apnoea syndrome [Unknown]
  - Osteoarthritis [Unknown]
  - Arthritis [Unknown]
  - Glucose tolerance impaired [Unknown]
  - Arthralgia [Unknown]
  - Gastrooesophageal reflux disease [Unknown]
  - Low turnover osteopathy [Not Recovered/Not Resolved]
  - Blood chloride decreased [Unknown]
  - Explorative laparotomy [Unknown]
  - Fall [Unknown]
  - Anxiety [Unknown]
  - Pollakiuria [Unknown]
  - Dyspnoea [Unknown]
  - Somnolence [Unknown]

NARRATIVE: CASE EVENT DATE: 20070126
